FAERS Safety Report 23141108 (Version 2)
Quarter: 2023Q4

REPORT INFORMATION
  Report Type: Report from Study
  Country: US (occurrence: None)
  Receive Date: 20231103
  Receipt Date: 20231219
  Transmission Date: 20240110
  Serious: Yes (Other)
  Sender: FDA-Public Use
  Company Number: 2023A245011

PATIENT
  Sex: Male

DRUGS (1)
  1. CALQUENCE [Suspect]
     Active Substance: ACALABRUTINIB
     Indication: Chronic lymphocytic leukaemia
     Route: 048

REACTIONS (8)
  - Seizure [Unknown]
  - Loss of consciousness [Unknown]
  - Limb discomfort [Unknown]
  - Balance disorder [Unknown]
  - Dysstasia [Unknown]
  - Gait disturbance [Unknown]
  - Urinary incontinence [Unknown]
  - Vomiting [Unknown]
